FAERS Safety Report 5239232-1 (Version None)
Quarter: 2007Q1

REPORT INFORMATION
  Report Type: 
  Country: None (occurrence: None)
  Receive Date: 20061208
  Receipt Date: 20050603
  Transmission Date: 20070707
  Serious: Yes (Other)
  Sender: FDA-Public Use
  Company Number: 2005UW08663

PATIENT
  Age: 51 Year
  Sex: Male
  Weight: 129.27 kg

DRUGS (10)
  1. CRESTOR [Suspect]
     Indication: BLOOD CHOLESTEROL INCREASED
     Dosage: 10 MG DAILY PO
     Route: 048
  2. ATENOLOL [Concomitant]
  3. METFORMIN HCL [Concomitant]
  4. NAPROXEN [Concomitant]
  5. HTZ [Concomitant]
  6. LORATADINE [Concomitant]
  7. LISINOPRIL [Concomitant]
  8. SINGULAIR [Concomitant]
  9. AVANDIA [Concomitant]
  10. LIPITOR [Concomitant]

REACTIONS (3)
  - CHROMATURIA [None]
  - DYSURIA [None]
  - MUSCLE SPASMS [None]
